FAERS Safety Report 4717702-X (Version None)
Quarter: 2005Q3

REPORT INFORMATION
  Report Type: 
  Country: None (occurrence: None)
  Receive Date: 20050715
  Receipt Date: 20050705
  Transmission Date: 20060218
  Serious: No
  Sender: FDA-Public Use
  Company Number: HQWYE129702JUN05

PATIENT
  Age: 55 Year
  Sex: Female
  Weight: 60 kg

DRUGS (12)
  1. EFFEXOR [Suspect]
     Indication: BIPOLAR DISORDER
     Dosage: SEE IMAGE
     Route: 048
  2. EFFEXOR [Suspect]
     Indication: DEPRESSION
     Dosage: SEE IMAGE
     Route: 048
  3. EFFEXOR [Suspect]
     Indication: BIPOLAR DISORDER
     Dosage: SEE IMAGE
     Route: 048
  4. EFFEXOR [Suspect]
     Indication: DEPRESSION
     Dosage: SEE IMAGE
     Route: 048
  5. EFFEXOR [Suspect]
     Indication: BIPOLAR DISORDER
     Dosage: SEE IMAGE
     Route: 048
  6. EFFEXOR [Suspect]
     Indication: DEPRESSION
     Dosage: SEE IMAGE
     Route: 048
  7. EFFEXOR [Suspect]
     Indication: BIPOLAR DISORDER
     Dosage: SEE IMAGE
     Route: 048
  8. EFFEXOR [Suspect]
     Indication: DEPRESSION
     Dosage: SEE IMAGE
     Route: 048
  9. . [Concomitant]
  10. . [Concomitant]
  11. . [Concomitant]
  12. TRIMIPRAMINE MALEATE [Concomitant]

REACTIONS (12)
  - CATAPLEXY [None]
  - DRUG INEFFECTIVE [None]
  - DRUG WITHDRAWAL SYNDROME [None]
  - FALL [None]
  - FATIGUE [None]
  - HYPERHIDROSIS [None]
  - HYPOMANIA [None]
  - HYPOTONIA [None]
  - NAUSEA [None]
  - SLEEP STUDY ABNORMAL [None]
  - SOMNOLENCE [None]
  - TREMOR [None]
